FAERS Safety Report 7492788-0 (Version None)
Quarter: 2011Q2

REPORT INFORMATION
  Report Type: 
  Country: None (occurrence: None)
  Receive Date: 20110519
  Receipt Date: 20110509
  Transmission Date: 20111010
  Serious: Yes (Other)
  Sender: FDA-Public Use
  Company Number: US-BAYER-2011-039727

PATIENT
  Age: 29 Year
  Sex: Male

DRUGS (2)
  1. ZESTORETIC [Concomitant]
     Indication: HYPERTENSION
  2. AVELOX [Suspect]
     Indication: PRODUCT USED FOR UNKNOWN INDICATION
     Dosage: 400 MG, QD
     Dates: start: 20110504, end: 20110506

REACTIONS (1)
  - HYPERSENSITIVITY [None]
